FAERS Safety Report 7757550-X (Version None)
Quarter: 2011Q3

REPORT INFORMATION
  Report Type: 
  Country: None (occurrence: None)
  Receive Date: 20110916
  Receipt Date: 20110913
  Transmission Date: 20111222
  Serious: Yes (Other)
  Sender: FDA-Public Use
  Company Number: US-PFIZER INC-2011080406

PATIENT
  Age: 40 Year
  Sex: Female

DRUGS (1)
  1. EFFEXOR [Suspect]
     Indication: DEPRESSION
     Dosage: 75 MG
     Dates: start: 20090101

REACTIONS (5)
  - FEELING ABNORMAL [None]
  - MENTAL IMPAIRMENT [None]
  - DIZZINESS [None]
  - WEIGHT INCREASED [None]
  - DEPRESSION [None]
